FAERS Safety Report 13929164 (Version 1)
Quarter: 2017Q3

REPORT INFORMATION
  Report Type: Report from Study
  Country: None (occurrence: AR)
  Receive Date: 20170901
  Receipt Date: 20170901
  Transmission Date: 20171127
  Serious: Yes (Hospitalization)
  Sender: FDA-Public Use
  Company Number: AR-ABBVIE-17K-007-2089716-00

PATIENT
  Age: 47 Year

DRUGS (1)
  1. HUMIRA [Suspect]
     Active Substance: ADALIMUMAB
     Indication: RHEUMATOID ARTHRITIS
     Route: 058
     Dates: start: 20150115

REACTIONS (2)
  - Coronary artery occlusion [Recovering/Resolving]
  - Lung infection [Recovering/Resolving]

NARRATIVE: CASE EVENT DATE: 201707
